FAERS Safety Report 15918114 (Version 1)
Quarter: 2019Q1

REPORT INFORMATION
  Report Type: Spontaneous
  Country: US (occurrence: US)
  Receive Date: 20190205
  Receipt Date: 20190205
  Transmission Date: 20190417
  Serious: Yes (Other)
  Sender: FDA-Public Use
  Company Number: US-ASTRAZENECA-2019SE17131

PATIENT
  Age: 70 Year
  Sex: Female
  Weight: 94.8 kg

DRUGS (15)
  1. PRILOSEC [Suspect]
     Active Substance: OMEPRAZOLE MAGNESIUM
     Dosage: OMEPRAZOLE
     Route: 048
  2. IBRANCE [Suspect]
     Active Substance: PALBOCICLIB
     Dosage: TAKE 1 CAPSULE, ONCE DAILY DAY 1 TO DAY 21 EVERY 28 DAYS
     Route: 048
  3. LETROZOLE. [Concomitant]
     Active Substance: LETROZOLE
     Dosage: TAKE 1 TABLET BY MOUTH EVERY DAY
     Route: 048
  4. XGEVA [Concomitant]
     Active Substance: DENOSUMAB
     Dosage: MONTHLY
  5. FEMARA [Concomitant]
     Active Substance: LETROZOLE
  6. COLACE [Concomitant]
     Active Substance: DOCUSATE SODIUM
     Dosage: TAKE 1 CAPSULE DAILY
     Route: 048
  7. FLUOXETINE [Concomitant]
     Active Substance: FLUOXETINE HYDROCHLORIDE
     Dosage: TAKE 1 CAPSULE DAILY
     Route: 048
  8. MYRBETRIQ [Concomitant]
     Active Substance: MIRABEGRON
     Dosage: EXTENDED RELEASE 24 HOUR
     Route: 048
  9. LEVOTHYROXINE SODIUM. [Concomitant]
     Active Substance: LEVOTHYROXINE SODIUM
     Dosage: TAKE 1 TABLET DAILY
     Route: 048
  10. VENLAFAXINE HYDROCHLORIDE. [Concomitant]
     Active Substance: VENLAFAXINE HYDROCHLORIDE
     Dosage: EXTENDED RELEASE 24 HOUR
     Route: 048
  11. TAMOXIFEN [Suspect]
     Active Substance: TAMOXIFEN
     Route: 048
     Dates: start: 1999
  12. LACTULOSE. [Concomitant]
     Active Substance: LACTULOSE
     Dosage: 10 GM/15ML ORAL SOLUTION; TAKE 15 ML BY MOUTH DAILY
     Route: 048
  13. PRILOSEC [Suspect]
     Active Substance: OMEPRAZOLE MAGNESIUM
     Route: 048
  14. IBUPROFEN. [Concomitant]
     Active Substance: IBUPROFEN
     Dosage: TAKE 1 TABLET 3 TIMES DAILY AS NEEDED
     Route: 048
  15. PANTOPRAZOLE SODIUM. [Concomitant]
     Active Substance: PANTOPRAZOLE SODIUM
     Dosage: TAKE 1 TABLET BY MOUTH EVERY DAY
     Route: 048

REACTIONS (16)
  - Constipation [Unknown]
  - Impaired healing [Unknown]
  - Spinal compression fracture [Unknown]
  - Malignant neoplasm progression [Unknown]
  - Endometrial thickening [Unknown]
  - Abdominal pain [Unknown]
  - Arthralgia [Unknown]
  - Metastases to lymph nodes [Unknown]
  - Bone pain [Unknown]
  - Gingivitis [Unknown]
  - Breast ulceration [Unknown]
  - Metastases to bone [Unknown]
  - Fatigue [Unknown]
  - Spinal column stenosis [Unknown]
  - Dyspepsia [Unknown]
  - Nausea [Unknown]

NARRATIVE: CASE EVENT DATE: 20170522
